FAERS Safety Report 18752453 (Version 2)
Quarter: 2022Q1

REPORT INFORMATION
  Report Type: Spontaneous
  Country: SA (occurrence: SA)
  Receive Date: 20210118
  Receipt Date: 20220106
  Transmission Date: 20220423
  Serious: Yes (Hospitalization)
  Sender: FDA-Public Use
  Company Number: SA-LUPIN PHARMACEUTICALS INC.-2021-00267

PATIENT
  Age: 55 Year
  Sex: Female
  Weight: 50 kg

DRUGS (6)
  1. CINACALCET [Suspect]
     Active Substance: CINACALCET
     Indication: Hypercalcaemia
     Dosage: 60 MILLIGRAM, QD
     Route: 065
  2. CINACALCET [Suspect]
     Active Substance: CINACALCET
     Dosage: 30 MILLIGRAM, QD
     Route: 065
  3. CINACALCET [Suspect]
     Active Substance: CINACALCET
     Dosage: 120 MILLIGRAM
     Route: 065
  4. CALCITONIN [Suspect]
     Active Substance: CALCITONIN
     Indication: Hypercalcaemia
     Dosage: 250 MICROGRAM (SHE RECEIVED CALCITONIN 250MCG/DOSE)
     Route: 058
  5. ZOLEDRONIC ACID [Suspect]
     Active Substance: ZOLEDRONIC ACID
     Indication: Hypercalcaemia
     Dosage: 4 MILLIGRAM (SHE RECEIVED A SINGLE DOSE OF ZOLEDRONIC-ACID)
     Route: 042
  6. ISOPHANE INSULIN [Concomitant]
     Active Substance: INSULIN NOS
     Indication: Diabetes mellitus
     Dosage: 10 INTERNATIONAL UNIT, BID
     Route: 065

REACTIONS (2)
  - Drug ineffective [Unknown]
  - Gastrointestinal disorder [Unknown]
